FAERS Safety Report 4838132-6 (Version None)
Quarter: 2005Q4

REPORT INFORMATION
  Report Type: 
  Country: None (occurrence: None)
  Receive Date: 20051114
  Receipt Date: 20051027
  Transmission Date: 20060501
  Serious: Yes (Hospitalization, Other)
  Sender: FDA-Public Use
  Company Number: 200410821BCA

PATIENT
  Age: 34 Year
  Sex: Male
  Weight: 77.6 kg

DRUGS (35)
  1. GAMUNEX [Suspect]
     Indication: KIDNEY TRANSPLANT REJECTION
     Dosage: SEE IMAGE
     Route: 042
     Dates: start: 20040915, end: 20040916
  2. GAMUNEX [Suspect]
     Indication: KIDNEY TRANSPLANT REJECTION
     Dosage: SEE IMAGE
     Route: 042
     Dates: start: 20040923, end: 20040927
  3. GAMUNEX [Suspect]
     Indication: KIDNEY TRANSPLANT REJECTION
     Dosage: SEE IMAGE
     Route: 042
     Dates: start: 20040930, end: 20041001
  4. GAMUNEX [Suspect]
     Indication: KIDNEY TRANSPLANT REJECTION
     Dosage: SEE IMAGE
     Route: 042
     Dates: start: 20040911
  5. GAMUNEX [Suspect]
     Indication: KIDNEY TRANSPLANT REJECTION
     Dosage: SEE IMAGE
     Route: 042
     Dates: start: 20040912
  6. GAMUNEX [Suspect]
     Indication: KIDNEY TRANSPLANT REJECTION
     Dosage: SEE IMAGE
     Route: 042
     Dates: start: 20040913
  7. GAMUNEX [Suspect]
     Indication: KIDNEY TRANSPLANT REJECTION
     Dosage: SEE IMAGE
     Route: 042
     Dates: start: 20040914
  8. GAMUNEX [Suspect]
     Indication: KIDNEY TRANSPLANT REJECTION
     Dosage: SEE IMAGE
     Route: 042
     Dates: start: 20040917
  9. GAMUNEX [Suspect]
     Indication: KIDNEY TRANSPLANT REJECTION
     Dosage: SEE IMAGE
     Route: 042
     Dates: start: 20040922
  10. GAMUNEX [Suspect]
     Indication: KIDNEY TRANSPLANT REJECTION
     Dosage: SEE IMAGE
     Route: 042
     Dates: start: 20040928
  11. GAMUNEX [Suspect]
     Indication: KIDNEY TRANSPLANT REJECTION
     Dosage: SEE IMAGE
     Route: 042
     Dates: start: 20040929
  12. GAMUNEX [Suspect]
     Indication: KIDNEY TRANSPLANT REJECTION
     Dosage: SEE IMAGE
     Route: 042
     Dates: start: 20041004
  13. GAMUNEX [Suspect]
     Indication: KIDNEY TRANSPLANT REJECTION
     Dosage: SEE IMAGE
     Route: 042
     Dates: start: 20041006
  14. GAMUNEX [Suspect]
     Indication: KIDNEY TRANSPLANT REJECTION
     Dosage: SEE IMAGE
     Route: 042
     Dates: start: 20041008
  15. GAMUNEX [Suspect]
     Indication: KIDNEY TRANSPLANT REJECTION
     Dosage: SEE IMAGE
     Route: 042
     Dates: start: 20041012
  16. GAMUNEX [Suspect]
     Indication: KIDNEY TRANSPLANT REJECTION
     Dosage: SEE IMAGE
     Route: 042
     Dates: start: 20041015
  17. GAMUNEX [Suspect]
     Indication: KIDNEY TRANSPLANT REJECTION
     Dosage: SEE IMAGE
     Route: 042
     Dates: start: 20041019
  18. GAMUNEX [Suspect]
     Indication: KIDNEY TRANSPLANT REJECTION
     Dosage: SEE IMAGE
     Route: 042
     Dates: start: 20041028
  19. GAMUNEX [Suspect]
     Indication: KIDNEY TRANSPLANT REJECTION
     Dosage: SEE IMAGE
     Route: 042
     Dates: start: 20041103
  20. GAMUNEX [Suspect]
     Indication: KIDNEY TRANSPLANT REJECTION
     Dosage: SEE IMAGE
     Route: 042
     Dates: start: 20041110
  21. GAMUNEX [Suspect]
     Indication: KIDNEY TRANSPLANT REJECTION
     Dosage: SEE IMAGE
     Route: 042
     Dates: start: 20041117
  22. GAMUNEX [Suspect]
  23. GAMUNEX [Suspect]
  24. GAMUNEX [Suspect]
  25. GAMUNEX [Suspect]
  26. GAMUNEX [Suspect]
  27. GAMUNEX [Suspect]
  28. PREDNISONE [Concomitant]
  29. PROGRAF [Concomitant]
  30. TIAZAC [Concomitant]
  31. PANTOPRAZOLE SODIUM [Concomitant]
  32. RIVOTRIL [Concomitant]
  33. KAYEXALATE [Concomitant]
  34. SODIUM BICARBONATE [Concomitant]
  35. IMURAN [Concomitant]

REACTIONS (9)
  - ABDOMINAL PAIN UPPER [None]
  - ANAEMIA [None]
  - COOMBS DIRECT TEST POSITIVE [None]
  - HAEMOGLOBIN DECREASED [None]
  - HAEMOLYSIS [None]
  - HEADACHE [None]
  - HYPERHIDROSIS [None]
  - RETICULOCYTE COUNT INCREASED [None]
  - RHESUS ANTIBODIES POSITIVE [None]
